FAERS Safety Report 21247912 (Version 1)
Quarter: 2022Q3

REPORT INFORMATION
  Report Type: Spontaneous
  Country: US (occurrence: None)
  Receive Date: 20220823
  Receipt Date: 20220823
  Transmission Date: 20221027
  Serious: Yes (Death, Hospitalization)
  Sender: FDA-Public Use
  Company Number: None

PATIENT
  Age: 4 Year
  Sex: Male
  Weight: 13.2 kg

DRUGS (6)
  1. CYTARABINE [Suspect]
     Active Substance: CYTARABINE
     Dates: end: 20220801
  2. DAUNORUBICIN [Suspect]
     Active Substance: DAUNORUBICIN
     Dates: end: 20220809
  3. DEXAMETHASONE [Suspect]
     Active Substance: DEXAMETHASONE
     Dates: end: 20220814
  4. METHOTREXATE [Suspect]
     Active Substance: METHOTREXATE
     Dates: end: 20220809
  5. ONCASPAR [Suspect]
     Active Substance: PEGASPARGASE
     Dates: end: 20220805
  6. VINCRISTINE SULFATE [Suspect]
     Active Substance: VINCRISTINE SULFATE
     Dates: end: 20220809

REACTIONS (15)
  - Diarrhoea [None]
  - Neutropenia [None]
  - Peripheral swelling [None]
  - Contusion [None]
  - Induration [None]
  - Pain in jaw [None]
  - Peripheral coldness [None]
  - Hyponatraemia [None]
  - Atypical pneumonia [None]
  - Blood culture positive [None]
  - Pseudomonal sepsis [None]
  - Disseminated intravascular coagulation [None]
  - Septic shock [None]
  - Cardiac arrest [None]
  - Pulmonary haemorrhage [None]

NARRATIVE: CASE EVENT DATE: 20220811
